FAERS Safety Report 9445211 (Version 1)
Quarter: 2013Q3

REPORT INFORMATION
  Report Type: Report from Study
  Country: US (occurrence: US)
  Receive Date: 20130807
  Receipt Date: 20130807
  Transmission Date: 20140515
  Serious: Yes (Hospitalization)
  Sender: FDA-Public Use
  Company Number: US-BAYER-2013-092970

PATIENT
  Age: 65 Year
  Sex: Female

DRUGS (2)
  1. NAPROXEN SODIUM ({= 220 MG) (E.G. ALEVE) [Suspect]
  2. BAYER GENUINE ASPIRIN ORIGINAL STRENGTH [Suspect]

REACTIONS (1)
  - Gastric disorder [None]
